FAERS Safety Report 18719280 (Version 1)
Quarter: 2021Q1

REPORT INFORMATION
  Report Type: Spontaneous
  Country: US (occurrence: US)
  Receive Date: 20210108
  Receipt Date: 20210108
  Transmission Date: 20210419
  Serious: Yes (Hospitalization)
  Sender: FDA-Public Use
  Company Number: US-FRESENIUS KABI-FK202100194

PATIENT
  Sex: Male

DRUGS (3)
  1. FENTANYL. [Suspect]
     Active Substance: FENTANYL
     Indication: PAIN
     Dates: start: 201505, end: 201505
  2. MIDAZOLAM (MANUFACTURER UNKNOWN) [Suspect]
     Active Substance: MIDAZOLAM HYDROCHLORIDE
     Indication: SEDATIVE THERAPY
     Dates: start: 201505, end: 201505
  3. PROPOFOL (MANUFACTURER UNKNOWN) [Suspect]
     Active Substance: PROPOFOL
     Indication: SEDATIVE THERAPY
     Dates: start: 201505, end: 201505

REACTIONS (8)
  - Otorrhoea [Recovering/Resolving]
  - Hallucination [Recovering/Resolving]
  - Dyspnoea [Recovering/Resolving]
  - Epistaxis [Recovering/Resolving]
  - Loss of consciousness [Recovering/Resolving]
  - Fear [Recovering/Resolving]
  - Panic reaction [Recovering/Resolving]
  - Tachycardia [Recovering/Resolving]

NARRATIVE: CASE EVENT DATE: 201505
